FAERS Safety Report 8230966-3 (Version None)
Quarter: 2012Q1

REPORT INFORMATION
  Report Type: 
  Country: None (occurrence: None)
  Receive Date: 20120323
  Receipt Date: 20120316
  Transmission Date: 20120608
  Serious: Yes (Other)
  Sender: FDA-Public Use
  Company Number: JP-PFIZER INC-2012069682

PATIENT

DRUGS (1)
  1. GEMCITABINE [Suspect]
     Indication: BILE DUCT CANCER
     Dosage: 800 MG/M2, UNK

REACTIONS (1)
  - CHOLANGITIS [None]
